FAERS Safety Report 4496928-7 (Version None)
Quarter: 2004Q4

REPORT INFORMATION
  Report Type: 
  Country: None (occurrence: None)
  Receive Date: 20041109
  Receipt Date: 20041003
  Transmission Date: 20050328
  Serious: Yes (Hospitalization)
  Sender: FDA-Public Use
  Company Number: DE-MERCK-0410DEU00033

PATIENT
  Age: 59 Year
  Sex: Female

DRUGS (7)
  1. VIOXX [Suspect]
     Indication: PAIN
     Route: 048
     Dates: start: 20040129, end: 20040221
  2. MEBEVERINE HYDROCHLORIDE [Concomitant]
     Indication: IRRITABLE BOWEL SYNDROME
     Route: 048
  3. ESTRADIOL [Concomitant]
     Route: 048
  4. BUDESONIDE [Concomitant]
     Route: 055
  5. TIOTROPIUM BROMIDE [Concomitant]
     Route: 055
  6. IPRATROPIUM BROMIDE AND FENOTEROL HYDROBROMIDE [Concomitant]
     Route: 055
  7. FORMOTEROL FUMARATE [Concomitant]
     Route: 055

REACTIONS (4)
  - COMA [None]
  - RASH [None]
  - SHOCK [None]
  - SWELLING FACE [None]
